FAERS Safety Report 13445177 (Version 1)
Quarter: 2017Q2

REPORT INFORMATION
  Report Type: Spontaneous
  Country: US (occurrence: US)
  Receive Date: 20170414
  Receipt Date: 20170414
  Transmission Date: 20170830
  Serious: Yes (Other)
  Sender: FDA-Public Use
  Company Number: US-GLAXOSMITHKLINE-US2017GSK054852

PATIENT
  Age: 57 Year
  Sex: Male

DRUGS (1)
  1. VENTOLIN [Suspect]
     Active Substance: ALBUTEROL SULFATE

REACTIONS (1)
  - Hospitalisation [Unknown]

NARRATIVE: CASE EVENT DATE: 20170330
